FAERS Safety Report 23608749 (Version 1)
Quarter: 2024Q1

REPORT INFORMATION
  Report Type: Spontaneous
  Country: CN (occurrence: CN)
  Receive Date: 20240308
  Receipt Date: 20240308
  Transmission Date: 20240409
  Serious: Yes (Hospitalization)
  Sender: FDA-Public Use
  Company Number: CN-RDY-LIT/CHN/24/0003856

PATIENT
  Age: 66 Year
  Sex: Male

DRUGS (8)
  1. PANTOPRAZOLE [Suspect]
     Active Substance: PANTOPRAZOLE
     Indication: Stress ulcer
  2. OMEPRAZOLE [Suspect]
     Active Substance: OMEPRAZOLE
     Indication: Stress ulcer
  3. RABEPRAZOLE [Suspect]
     Active Substance: RABEPRAZOLE
     Indication: Stress ulcer
  4. IBUPROFEN [Suspect]
     Active Substance: IBUPROFEN
     Indication: Arthralgia
  5. DEXKETOPROFEN [Suspect]
     Active Substance: DEXKETOPROFEN
     Indication: Arthralgia
  6. MEROPENEM [Suspect]
     Active Substance: MEROPENEM
     Indication: Infection
  7. CEPHALOTHIN [Suspect]
     Active Substance: CEPHALOTHIN
     Indication: Infection
  8. METHOTREXATE [Suspect]
     Active Substance: METHOTREXATE
     Indication: Rheumatoid arthritis
     Dosage: LOW DOSE

REACTIONS (3)
  - Myelosuppression [Recovered/Resolved]
  - Anaemia [Recovered/Resolved]
  - Drug interaction [Not Recovered/Not Resolved]
